FAERS Safety Report 4833753-9 (Version None)
Quarter: 2005Q4

REPORT INFORMATION
  Report Type: 
  Country: None (occurrence: None)
  Receive Date: 20051116
  Receipt Date: 20051116
  Transmission Date: 20060501
  Serious: Yes (Hospitalization, Other)
  Sender: FDA-Public Use
  Company Number: None

PATIENT
  Sex: Female
  Weight: 103 kg

DRUGS (13)
  1. PACLITAXEL [Suspect]
     Indication: BREAST CANCER
     Dosage: SEE IMAGE
     Dates: start: 20050831, end: 20050930
  2. PACLITAXEL [Suspect]
     Indication: BREAST CANCER
     Dosage: SEE IMAGE
     Dates: start: 20050930
  3. CENTRUM SILVER [Concomitant]
  4. POTASSIUM CHLORIDE [Concomitant]
  5. ALPRAZOLAM [Concomitant]
  6. CITRACAL [Concomitant]
  7. FEMARA [Concomitant]
  8. HYDROCHLOROTHIAZIDE [Concomitant]
  9. LESCOL [Concomitant]
  10. METOPROLOL [Concomitant]
  11. OXYCODONE WITH TYLENOL [Concomitant]
  12. PREVACID [Concomitant]
  13. VITAMIN B6 [Concomitant]

REACTIONS (11)
  - CELLULITIS [None]
  - CULTURE POSITIVE [None]
  - ERYTHEMA [None]
  - HYPOAESTHESIA [None]
  - INDURATION [None]
  - PAIN [None]
  - RASH PAPULAR [None]
  - SKIN EXFOLIATION [None]
  - SKIN LESION [None]
  - STAPHYLOCOCCAL INFECTION [None]
  - TENDERNESS [None]
